FAERS Safety Report 25889809 (Version 2)
Quarter: 2025Q4

REPORT INFORMATION
  Report Type: Spontaneous
  Country: US (occurrence: US)
  Receive Date: 20251007
  Receipt Date: 20251010
  Transmission Date: 20260118
  Serious: Yes (Other)
  Sender: PFIZER
  Company Number: US-MLMSERVICE-20250930-PI655488-00072-3

PATIENT
  Age: 34 Year
  Sex: Female
  Weight: 109.5 kg

DRUGS (2)
  1. BUPIVACAINE HYDROCHLORIDE [Suspect]
     Active Substance: BUPIVACAINE HYDROCHLORIDE
     Indication: Spinal anaesthesia
     Dosage: 1.9-2 ML, INTRATHECAL HYPERBARIC BUPIVACAINE 0.75 %
     Route: 037
  2. MORPHINE SULFATE [Suspect]
     Active Substance: MORPHINE SULFATE
     Indication: Spinal anaesthesia
     Dosage: 200 UG
     Route: 037

REACTIONS (3)
  - Syncope [Unknown]
  - Hypotension [Unknown]
  - Off label use [Unknown]
